FAERS Safety Report 14900496 (Version 1)
Quarter: 2018Q2

REPORT INFORMATION
  Report Type: Spontaneous
  Country: FR (occurrence: FR)
  Receive Date: 20180516
  Receipt Date: 20180516
  Transmission Date: 20180711
  Serious: Yes (Other)
  Sender: FDA-Public Use
  Company Number: FR-MERCK KGAA-2047909

PATIENT
  Age: 64 Year
  Sex: Female

DRUGS (1)
  1. NOVOTHYROX [Suspect]
     Active Substance: LEVOTHYROXINE SODIUM
     Indication: POST PROCEDURAL HYPOTHYROIDISM

REACTIONS (13)
  - Pain [None]
  - Loss of personal independence in daily activities [None]
  - Blood thyroid stimulating hormone decreased [Recovered/Resolved]
  - Gait disturbance [None]
  - Dizziness [Recovered/Resolved]
  - Fatigue [None]
  - Fractured sacrum [Recovered/Resolved]
  - Alopecia [Recovered/Resolved]
  - Muscle spasms [Recovered/Resolved]
  - Irritability [None]
  - Insomnia [Recovered/Resolved]
  - Fall [Recovered/Resolved]
  - Social problem [None]

NARRATIVE: CASE EVENT DATE: 20170817
